FAERS Safety Report 14000142 (Version 1)
Quarter: 2017Q3

REPORT INFORMATION
  Report Type: Spontaneous
  Country: US (occurrence: US)
  Receive Date: 20170922
  Receipt Date: 20170922
  Transmission Date: 20171128
  Serious: Yes (Disabling)
  Sender: FDA-Public Use
  Company Number: None

PATIENT
  Age: 62 Year
  Sex: Female
  Weight: 66.15 kg

DRUGS (3)
  1. VITAMIN D3 [Concomitant]
     Active Substance: CHOLECALCIFEROL
  2. XANAX [Suspect]
     Active Substance: ALPRAZOLAM
     Indication: INSOMNIA
     Dosage: ?          QUANTITY:1 TABLET(S);?
     Route: 048
  3. BIOTIN [Concomitant]
     Active Substance: BIOTIN

REACTIONS (26)
  - Apathy [None]
  - Derealisation [None]
  - Fear [None]
  - Tinnitus [None]
  - Dysstasia [None]
  - Loss of personal independence in daily activities [None]
  - Memory impairment [None]
  - Diarrhoea [None]
  - Depression [None]
  - Neuralgia [None]
  - Anxiety [None]
  - Withdrawal syndrome [None]
  - Tremor [None]
  - Food intolerance [None]
  - Back pain [None]
  - Stress [None]
  - Night sweats [None]
  - Emotional distress [None]
  - Paraesthesia [None]
  - Reading disorder [None]
  - Impaired work ability [None]
  - Cognitive disorder [None]
  - Bradyphrenia [None]
  - Suicidal ideation [None]
  - Intrusive thoughts [None]
  - Pollakiuria [None]

NARRATIVE: CASE EVENT DATE: 20110201
